FAERS Safety Report 19414370 (Version 1)
Quarter: 2021Q2

REPORT INFORMATION
  Report Type: Spontaneous
  Country: US (occurrence: US)
  Receive Date: 20210614
  Receipt Date: 20210614
  Transmission Date: 20210717
  Serious: No
  Sender: FDA-Public Use
  Company Number: US-CELGENEUS-USA-20210601869

PATIENT
  Sex: Male

DRUGS (3)
  1. PANTOPRAZOLE [Concomitant]
     Active Substance: PANTOPRAZOLE
     Indication: PRODUCT USED FOR UNKNOWN INDICATION
     Route: 065
  2. ABRAXANE [Suspect]
     Active Substance: PACLITAXEL
     Indication: PANCREATIC CARCINOMA METASTATIC
     Route: 041
     Dates: start: 20210518
  3. ABRAXANE [Suspect]
     Active Substance: PACLITAXEL
     Dosage: 20% DOSE WAS DECREASED
     Route: 041
     Dates: start: 20210601

REACTIONS (1)
  - Full blood count decreased [Unknown]

NARRATIVE: CASE EVENT DATE: 2021
